FAERS Safety Report 8345411-7 (Version None)
Quarter: 2012Q2

REPORT INFORMATION
  Report Type: 
  Country: None (occurrence: None)
  Receive Date: 20120508
  Receipt Date: 20120426
  Transmission Date: 20120825
  Serious: Yes (Other)
  Sender: FDA-Public Use
  Company Number: ES-TEVA-336129ISR

PATIENT
  Age: 53 Year
  Sex: Female

DRUGS (1)
  1. CODEISAN COMPRIMIDOS 20 COMPRIMIDOS [Suspect]
     Indication: COUGH
     Dates: start: 20120101

REACTIONS (3)
  - AREFLEXIA [None]
  - DIZZINESS [None]
  - ASTHENIA [None]
